FAERS Safety Report 8930526 (Version 2)
Quarter: 2013Q2

REPORT INFORMATION
  Report Type: Report from Study
  Country: IT (occurrence: IT)
  Receive Date: 20121128
  Receipt Date: 20130403
  Transmission Date: 20140414
  Serious: Yes (Death)
  Sender: FDA-Public Use
  Company Number: PHHY2012IT107214

PATIENT
  Age: 67 Year
  Sex: Female
  Weight: 59 kg

DRUGS (5)
  1. CERTICAN [Suspect]
     Dosage: 0.5 MG/DAY
     Route: 048
     Dates: start: 20040804
  2. IVABRADINE [Concomitant]
     Indication: CORONARY ARTERY DISEASE
     Dosage: UNK UKN, UNK
     Dates: start: 20100212
  3. CLOPIDOGREL [Concomitant]
     Indication: CORONARY ARTERIAL STENT INSERTION
     Dosage: 75 MG/DAY
     Dates: start: 20070804
  4. WARFARIN [Concomitant]
     Indication: PROPHYLAXIS
     Dosage: 5 MG/DAY
     Dates: start: 20080624
  5. NITROGLYCERINE [Concomitant]
     Indication: HYPERTENSION
     Dosage: 10 UG, UNK
     Dates: start: 20100910

REACTIONS (1)
  - Sudden death [Fatal]
